FAERS Safety Report 10844452 (Version 1)
Quarter: 2015Q1

REPORT INFORMATION
  Report Type: Spontaneous
  Country: US (occurrence: US)
  Receive Date: 20150220
  Receipt Date: 20150220
  Transmission Date: 20150721
  Serious: Yes (Death, Other)
  Sender: FDA-Public Use
  Company Number: US-CELGENE-USA-2015021434

PATIENT

DRUGS (15)
  1. FLAVOPIRIDOL [Suspect]
     Active Substance: ALVOCIDIB
     Dosage: OVER 30 MINS
     Route: 041
  2. HEPARIN [Concomitant]
     Active Substance: HEPARIN SODIUM
     Indication: DEEP VEIN THROMBOSIS
     Route: 065
  3. VALACYCLOVIR [Concomitant]
     Active Substance: VALACYCLOVIR HYDROCHLORIDE
     Indication: PRODUCT USED FOR UNKNOWN INDICATION
     Dosage: 6 MILLIGRAM
     Route: 065
  4. REVLIMID [Suspect]
     Active Substance: LENALIDOMIDE
     Dosage: 5MG-10MG
     Route: 048
  5. REVLIMID [Suspect]
     Active Substance: LENALIDOMIDE
     Route: 048
  6. NEULASTA [Concomitant]
     Active Substance: PEGFILGRASTIM
     Indication: PRODUCT USED FOR UNKNOWN INDICATION
     Dosage: 8 MILLIGRAM
     Route: 058
  7. TRIMETHOPRIM/SULFAMETHOXAZOLE DS [Concomitant]
     Indication: PRODUCT USED FOR UNKNOWN INDICATION
     Route: 065
  8. FLAVOPIRIDOL [Suspect]
     Active Substance: ALVOCIDIB
     Dosage: OVER 30 MINS
     Route: 041
  9. RASBURICASE [Concomitant]
     Active Substance: RASBURICASE
     Indication: PRODUCT USED FOR UNKNOWN INDICATION
     Dosage: 2 HOURS PRIOR TO EACH DOSE OF FLAVOPIRIDOL
     Route: 065
  10. DEXAMETHASONE. [Concomitant]
     Active Substance: DEXAMETHASONE
     Indication: PRODUCT USED FOR UNKNOWN INDICATION
     Dosage: 30MINS PRIOR TO EACH DOSE OF FLAVOPIRIDOL
     Route: 065
  11. DEXAMETHASONE. [Concomitant]
     Active Substance: DEXAMETHASONE
     Dosage: AFTER EACH DOSE
     Route: 065
  12. ONDANSETRON [Concomitant]
     Active Substance: ONDANSETRON
     Indication: PRODUCT USED FOR UNKNOWN INDICATION
     Dosage: 30MIS PRIOR TO EACH DOSE OF FLAVOPIRIDOL
     Route: 048
  13. REVLIMID [Suspect]
     Active Substance: LENALIDOMIDE
     Indication: CHRONIC LYMPHOCYTIC LEUKAEMIA RECURRENT
     Route: 048
  14. CIPROFLOXACIN. [Concomitant]
     Active Substance: CIPROFLOXACIN
     Indication: PRODUCT USED FOR UNKNOWN INDICATION
     Route: 065
  15. FLAVOPIRIDOL [Suspect]
     Active Substance: ALVOCIDIB
     Indication: CHRONIC LYMPHOCYTIC LEUKAEMIA
     Dosage: OVER 30 MINS
     Route: 041

REACTIONS (24)
  - Death [Fatal]
  - Lymphopenia [Unknown]
  - Herpes zoster [Unknown]
  - Hypophosphataemia [Unknown]
  - Thrombocytopenia [Unknown]
  - Cellulitis [Unknown]
  - Blood creatinine increased [Unknown]
  - Tumour lysis syndrome [Unknown]
  - Cytokine release syndrome [Unknown]
  - Tumour flare [Unknown]
  - Transaminases increased [Unknown]
  - Hyperkalaemia [Unknown]
  - Hyperglycaemia [Unknown]
  - Anaemia [Unknown]
  - Febrile neutropenia [Unknown]
  - Upper respiratory tract infection [Unknown]
  - Diarrhoea [Unknown]
  - Neutropenia [Unknown]
  - Constipation [Unknown]
  - Fatigue [Unknown]
  - Chronic lymphocytic leukaemia [Unknown]
  - Pneumonia [Unknown]
  - Hypocalcaemia [Unknown]
  - Hypokalaemia [Unknown]
